FAERS Safety Report 9198868 (Version 1)
Quarter: 2013Q1

REPORT INFORMATION
  Report Type: Spontaneous
  Country: BR (occurrence: BR)
  Receive Date: 20130329
  Receipt Date: 20130329
  Transmission Date: 20140127
  Serious: Yes (Hospitalization, Other)
  Sender: FDA-Public Use
  Company Number: BR-009507513-1303BRA012858

PATIENT
  Age: 28 Year
  Sex: Female
  Weight: 73 kg

DRUGS (2)
  1. NUVARING [Suspect]
     Indication: CONTRACEPTION
     Dosage: 1 DF, UNK
     Route: 067
     Dates: start: 2007, end: 201006
  2. NUVARING [Suspect]
     Dosage: 1 UNK, UNK
     Route: 067
     Dates: start: 2012

REACTIONS (4)
  - Oophorectomy [Recovered/Resolved]
  - Fallopian tube operation [Recovered/Resolved]
  - Ovarian cyst [Recovered/Resolved]
  - Menstrual disorder [Not Recovered/Not Resolved]
